FAERS Safety Report 4918767-2 (Version None)
Quarter: 2006Q1

REPORT INFORMATION
  Report Type: 
  Country: None (occurrence: None)
  Receive Date: 20060222
  Receipt Date: 20060209
  Transmission Date: 20060701
  Serious: Yes (Other)
  Sender: FDA-Public Use
  Company Number: PHBS2006BR02469

PATIENT
  Sex: Female

DRUGS (1)
  1. CODATEN [Suspect]
     Indication: PAIN
     Dosage: 1 DF, Q8H
     Route: 048
     Dates: start: 20040401

REACTIONS (5)
  - DIZZINESS [None]
  - ILL-DEFINED DISORDER [None]
  - NAUSEA [None]
  - SYNCOPE [None]
  - THROMBOSIS [None]
